FAERS Safety Report 10060266 (Version 2)
Quarter: 2014Q2

REPORT INFORMATION
  Report Type: Report from Study
  Country: HU (occurrence: HU)
  Receive Date: 20140404
  Receipt Date: 20140404
  Transmission Date: 20141212
  Serious: Yes (Hospitalization)
  Sender: FDA-Public Use
  Company Number: HU-JNJFOC-20140101452

PATIENT
  Age: 53 Year
  Sex: Female

DRUGS (1)
  1. STELARA [Suspect]
     Indication: PSORIASIS
     Route: 058
     Dates: start: 20130322

REACTIONS (11)
  - Peripheral swelling [Recovered/Resolved]
  - Rash erythematous [Recovered/Resolved]
  - Influenza like illness [Recovered/Resolved]
  - Oropharyngeal pain [Unknown]
  - Back pain [Recovered/Resolved]
  - Body temperature decreased [Unknown]
  - Lymphadenitis [Unknown]
  - Periodontitis [Unknown]
  - Nasopharyngitis [Recovered/Resolved]
  - Tracheitis [Recovered/Resolved]
  - Gingival bleeding [Unknown]
